FAERS Safety Report 17648011 (Version 1)
Quarter: 2020Q2

REPORT INFORMATION
  Report Type: Report from Study
  Country: None (occurrence: CO)
  Receive Date: 20200409
  Receipt Date: 20200409
  Transmission Date: 20200713
  Serious: Yes (Hospitalization)
  Sender: FDA-Public Use
  Company Number: CO-ABBVIE-20K-036-3311975-00

PATIENT
  Age: 37 Year
  Sex: Female
  Weight: 65 kg

DRUGS (1)
  1. HUMIRA [Suspect]
     Active Substance: ADALIMUMAB
     Indication: COLITIS ULCERATIVE
     Route: 058
     Dates: start: 20180516, end: 20200224

REACTIONS (8)
  - Abdominal pain [Recovering/Resolving]
  - Peripheral swelling [Unknown]
  - Diarrhoea haemorrhagic [Unknown]
  - Varicella zoster virus infection [Unknown]
  - Malnutrition [Unknown]
  - Diarrhoea [Recovering/Resolving]
  - Herpes zoster [Unknown]
  - Red blood cell count decreased [Unknown]

NARRATIVE: CASE EVENT DATE: 202002
